FAERS Safety Report 17658364 (Version 1)
Quarter: 2020Q2

REPORT INFORMATION
  Report Type: Spontaneous
  Country: US (occurrence: US)
  Receive Date: 20200412
  Receipt Date: 20200412
  Transmission Date: 20200713
  Serious: Yes (Other)
  Sender: FDA-Public Use
  Company Number: US-ROCHE-2579622

PATIENT
  Sex: Female

DRUGS (1)
  1. XOLAIR [Suspect]
     Active Substance: OMALIZUMAB
     Indication: HYPERLIPIDAEMIA
     Dosage: PFS
     Route: 058
     Dates: start: 20190822

REACTIONS (3)
  - Off label use [Unknown]
  - Myocardial infarction [Unknown]
  - Intentional product use issue [Unknown]
